FAERS Safety Report 12804521 (Version 2)
Quarter: 2016Q4

REPORT INFORMATION
  Report Type: Spontaneous
  Country: US (occurrence: US)
  Receive Date: 20161003
  Receipt Date: 20161230
  Transmission Date: 20170207
  Serious: No
  Sender: FDA-Public Use
  Company Number: US-VERTEX PHARMACEUTICALS-2016-005615

PATIENT
  Age: 20 Year
  Sex: Female

DRUGS (8)
  1. ORKAMBI [Suspect]
     Active Substance: IVACAFTOR\LUMACAFTOR
     Indication: CYSTIC FIBROSIS
     Dosage: 2 DF (400-250 MG), BID
     Route: 048
     Dates: start: 2015
  2. BUSPIRONE HCL [Concomitant]
     Active Substance: BUSPIRONE HYDROCHLORIDE
  3. CREON [Concomitant]
     Active Substance: PANCRELIPASE AMYLASE\PANCRELIPASE LIPASE\PANCRELIPASE PROTEASE
  4. ZYRTEC [Concomitant]
     Active Substance: CETIRIZINE HYDROCHLORIDE
  5. METRONIDAZOLE. [Concomitant]
     Active Substance: METRONIDAZOLE
  6. LEVOTHYROXINE. [Concomitant]
     Active Substance: LEVOTHYROXINE
  7. LEVALBUTEROL. [Concomitant]
     Active Substance: LEVALBUTEROL
  8. TARTRATE [Concomitant]

REACTIONS (5)
  - Fatigue [Recovering/Resolving]
  - Respiratory tract congestion [Recovering/Resolving]
  - Depressed mood [Recovered/Resolved]
  - Cough [Recovering/Resolving]
  - Infection [Unknown]

NARRATIVE: CASE EVENT DATE: 201612
